FAERS Safety Report 7944958-2 (Version None)
Quarter: 2011Q4

REPORT INFORMATION
  Report Type: 
  Country: None (occurrence: None)
  Receive Date: 20111129
  Receipt Date: 20111124
  Transmission Date: 20120403
  Serious: Yes (Death, Hospitalization)
  Sender: FDA-Public Use
  Company Number: PHHY2011BR43818

PATIENT
  Sex: Male

DRUGS (1)
  1. EXELON [Suspect]
     Dosage: 27 MG/15 CM2
     Route: 062

REACTIONS (3)
  - DEATH [None]
  - RESPIRATORY ARREST [None]
  - ISCHAEMIA [None]
